FAERS Safety Report 22209286 (Version 1)
Quarter: 2023Q2

REPORT INFORMATION
  Report Type: Spontaneous
  Country: US (occurrence: US)
  Receive Date: 20230413
  Receipt Date: 20230413
  Transmission Date: 20230722
  Serious: No
  Sender: FDA-Public Use
  Company Number: US-BAUSCHBL-2023BNL003073

PATIENT
  Age: 78 Year
  Sex: Female

DRUGS (1)
  1. LACRISERT [Suspect]
     Active Substance: HYDROXYPROPYL CELLULOSE
     Indication: Sjogren^s syndrome
     Dosage: ONE IN EACH EYE
     Route: 047

REACTIONS (3)
  - Corneal oedema [Unknown]
  - Therapy interrupted [Unknown]
  - Product availability issue [Unknown]
